FAERS Safety Report 23725281 (Version 1)
Quarter: 2024Q2

REPORT INFORMATION
  Report Type: Spontaneous
  Country: US (occurrence: US)
  Receive Date: 20240410
  Receipt Date: 20240410
  Transmission Date: 20240716
  Serious: Yes (Hospitalization, Other)
  Sender: FDA-Public Use
  Company Number: None

PATIENT
  Age: 89 Year
  Sex: Female

DRUGS (1)
  1. AMIODARONE [Suspect]
     Active Substance: AMIODARONE
     Indication: Atrial fibrillation

REACTIONS (3)
  - Thrombocytopenia [Recovering/Resolving]
  - Cutaneous vasculitis [Recovered/Resolved]
  - Cutaneous vasculitis [Recovered/Resolved]
